FAERS Safety Report 5486497-7 (Version None)
Quarter: 2007Q4

REPORT INFORMATION
  Report Type: 
  Country: None (occurrence: None)
  Receive Date: 20071012
  Receipt Date: 20071002
  Transmission Date: 20080405
  Serious: Yes (Life-Threatening, Hospitalization, Other)
  Sender: FDA-Public Use
  Company Number: US020728

PATIENT
  Age: 59 Year
  Sex: Male

DRUGS (3)
  1. TRISENOX [Suspect]
     Indication: ACUTE MYELOID LEUKAEMIA
     Dosage: 0.15 MG/KG ONCE INTRAVENOUS DRIP
     Route: 041
     Dates: start: 20070822, end: 20070822
  2. INTERFERON [Concomitant]
  3. DEXAMETHASONE 0.5MG TAB [Concomitant]

REACTIONS (8)
  - BLOOD POTASSIUM INCREASED [None]
  - BLOOD PRESSURE DECREASED [None]
  - DIALYSIS [None]
  - ELECTROCARDIOGRAM QRS COMPLEX PROLONGED [None]
  - ELECTROCARDIOGRAM QT PROLONGED [None]
  - ELECTROCARDIOGRAM ST SEGMENT ELEVATION [None]
  - TACHYCARDIA [None]
  - VENTRICULAR EXTRASYSTOLES [None]
